FAERS Safety Report 7225099-9 (Version None)
Quarter: 2011Q1

REPORT INFORMATION
  Report Type: 
  Country: None (occurrence: None)
  Receive Date: 20110103
  Receipt Date: 20101207
  Transmission Date: 20110831
  Serious: Yes (Other)
  Sender: FDA-Public Use
  Company Number: GB-ACCORD-006945

PATIENT
  Age: 43 Year
  Sex: Female

DRUGS (1)
  1. TOPIRAMATE [Suspect]
     Indication: MIGRAINE
     Dosage: 25.00-MG-1.00PER / ORAL -1.0DAYS
     Route: 048

REACTIONS (3)
  - CHOROIDAL EFFUSION [None]
  - PHOTOPSIA [None]
  - RETINAL DETACHMENT [None]
